FAERS Safety Report 12839281 (Version 2)
Quarter: 2016Q4

REPORT INFORMATION
  Report Type: Spontaneous
  Country: US (occurrence: US)
  Receive Date: 20161012
  Receipt Date: 20161227
  Transmission Date: 20170207
  Serious: Yes (Other)
  Sender: FDA-Public Use
  Company Number: US-PFIZER INC-2016471089

PATIENT
  Age: 72 Year
  Sex: Male
  Weight: 100 kg

DRUGS (3)
  1. WARFARIN [Concomitant]
     Active Substance: WARFARIN
     Dosage: 1 DF, ALTERNATE DAY
     Dates: start: 2016
  2. REVATIO [Suspect]
     Active Substance: SILDENAFIL CITRATE
     Indication: LUNG DISORDER
     Dosage: 20 MG, 2X/DAY
     Route: 048
     Dates: start: 2011
  3. WARFARIN [Concomitant]
     Active Substance: WARFARIN
     Indication: VENTRICULAR FIBRILLATION
     Dosage: 1.5 DF, ALTERNATE DAY
     Dates: start: 2016

REACTIONS (3)
  - Dyspnoea [Not Recovered/Not Resolved]
  - Product use issue [Unknown]
  - Aortic valve disease [Unknown]

NARRATIVE: CASE EVENT DATE: 2011
